FAERS Safety Report 25555174 (Version 1)
Quarter: 2025Q3

REPORT INFORMATION
  Report Type: Spontaneous
  Country: US (occurrence: None)
  Receive Date: 20250714
  Receipt Date: 20250714
  Transmission Date: 20251020
  Serious: Yes (Hospitalization)
  Sender: FDA-CTU
  Company Number: None

PATIENT
  Sex: Female

DRUGS (2)
  1. NYVEPRIA [Suspect]
     Active Substance: PEGFILGRASTIM-APGF
     Indication: Agranulocytosis
     Route: 058
     Dates: start: 20250214
  2. GLEOSTINE [Suspect]
     Active Substance: LOMUSTINE
     Indication: Agranulocytosis
     Route: 048
     Dates: start: 20250207

REACTIONS (3)
  - Swelling [None]
  - Cognitive disorder [None]
  - Abdominal pain [None]
